FAERS Safety Report 25733637 (Version 1)
Quarter: 2025Q3

REPORT INFORMATION
  Report Type: Spontaneous
  Country: CA (occurrence: CA)
  Receive Date: 20250828
  Receipt Date: 20250828
  Transmission Date: 20251021
  Serious: Yes (Death, Other)
  Sender: Kenvue
  Company Number: CA-KENVUE-20250807442

PATIENT

DRUGS (2)
  1. TYLENOL 8 HR ARTHRITIS PAIN [Suspect]
     Active Substance: ACETAMINOPHEN
     Indication: Back pain
     Dosage: 1300 MILLIGRAM, (1 EVERY 2 HOURS)
     Route: 065
  2. ROBAXACET [Suspect]
     Active Substance: ACETAMINOPHEN\METHOCARBAMOL
     Indication: Back pain
     Dosage: 2 DOSAGE FORM, (1 EVERY 2 HOURS)
     Route: 065

REACTIONS (6)
  - Accidental death [Fatal]
  - Renal failure [Fatal]
  - Hepatic failure [Fatal]
  - Toxicity to various agents [Fatal]
  - Dialysis [Fatal]
  - Overdose [Fatal]
